FAERS Safety Report 9776258 (Version 2)
Quarter: 2014Q1

REPORT INFORMATION
  Report Type: Spontaneous
  Country: DK (occurrence: DE)
  Receive Date: 20131220
  Receipt Date: 20140130
  Transmission Date: 20141002
  Serious: Yes (Other)
  Sender: FDA-Public Use
  Company Number: DE-FRI-1000052397

PATIENT
  Sex: Female

DRUGS (4)
  1. ESCITALOPRAM [Suspect]
     Indication: DEPRESSION
     Dosage: 5 OR 10 MG/DAY
     Dates: start: 2004
  2. ESCITALOPRAM [Suspect]
     Dosage: 1 MG
  3. ESCITALOPRAM [Suspect]
     Dosage: 5 MG
  4. CITALOPRAM [Suspect]
     Indication: DEPRESSION
     Dosage: 20 MG

REACTIONS (4)
  - Drug withdrawal syndrome [Recovered/Resolved]
  - Erythema [Recovered/Resolved]
  - Pruritus [Recovered/Resolved]
  - Alopecia [Recovered/Resolved]
